FAERS Safety Report 14085263 (Version 2)
Quarter: 2017Q4

REPORT INFORMATION
  Report Type: Spontaneous
  Country: US (occurrence: US)
  Receive Date: 20171013
  Receipt Date: 20171215
  Transmission Date: 20180321
  Serious: Yes (Hospitalization)
  Sender: FDA-Public Use
  Company Number: US-PFIZER INC-2017433245

PATIENT
  Age: 76 Year
  Sex: Female
  Weight: 72.56 kg

DRUGS (2)
  1. PREMARIN [Suspect]
     Active Substance: ESTROGENS, CONJUGATED
     Indication: URINARY TRACT INFECTION
     Dosage: 1X/DAY, (USED IN THE MORNING, THE LOWEST DOSE, FILLED TO 0.5 WHICH IS THE FIRST LINE)
     Route: 067
     Dates: start: 20171004
  2. PREMARIN [Suspect]
     Active Substance: ESTROGENS, CONJUGATED
     Dosage: UNK, 2X/WEEK (0.05)
     Dates: start: 201709

REACTIONS (4)
  - Urinary tract infection [Recovered/Resolved]
  - Intentional product misuse [Unknown]
  - Discomfort [Unknown]
  - Incorrect dose administered by device [Unknown]

NARRATIVE: CASE EVENT DATE: 201709
